FAERS Safety Report 8859331 (Version 1)
Quarter: 2012Q4

REPORT INFORMATION
  Report Type: 
  Country: US (occurrence: US)
  Receive Date: 20121024
  Receipt Date: 20121024
  Transmission Date: 20130627
  Serious: No
  Sender: FDA-Public Use
  Company Number: US-ASTRAZENECA-2012SE24852

PATIENT
  Sex: Female

DRUGS (5)
  1. TOPROL XL [Suspect]
     Indication: HYPERTENSION
     Route: 048
  2. TOPROL XL [Suspect]
     Indication: HYPERTENSION
     Route: 048
  3. TOPROL XL [Suspect]
     Indication: HYPERTENSION
     Route: 048
  4. TOPROL XL [Suspect]
     Indication: HYPERTENSION
     Route: 048
  5. TOPROL XL [Suspect]
     Indication: HYPERTENSION
     Dosage: CUT 50 MG IN HALF THEN TAKES OTHER HALF
     Route: 048

REACTIONS (3)
  - Dysphagia [Unknown]
  - Speech disorder [Unknown]
  - Off label use [Unknown]
